FAERS Safety Report 18244159 (Version 2)
Quarter: 2020Q3

REPORT INFORMATION
  Report Type: Spontaneous
  Country: US (occurrence: US)
  Receive Date: 20200908
  Receipt Date: 20200911
  Transmission Date: 20201103
  Serious: Yes (Hospitalization, Other)
  Sender: FDA-Public Use
  Company Number: US-009507513-2009USA001445

PATIENT
  Age: 10 Year
  Sex: Male

DRUGS (5)
  1. MICAFUNGIN. [Concomitant]
     Active Substance: MICAFUNGIN SODIUM
  2. EMEND [Concomitant]
     Active Substance: APREPITANT
  3. NOXAFIL [Suspect]
     Active Substance: POSACONAZOLE
     Indication: PRODUCT USED FOR UNKNOWN INDICATION
     Route: 048
  4. JAKAFI [Interacting]
     Active Substance: RUXOLITINIB
     Indication: GRAFT VERSUS HOST DISEASE
     Route: 048
  5. JAKAFI [Interacting]
     Active Substance: RUXOLITINIB
     Dosage: 5MG QAM AND 2.5MG QPM
     Route: 048

REACTIONS (3)
  - Blood count abnormal [Recovered/Resolved]
  - Cytomegalovirus infection reactivation [Recovered/Resolved]
  - Drug interaction [Recovered/Resolved]
